FAERS Safety Report 20411343 (Version 5)
Quarter: 2023Q4

REPORT INFORMATION
  Report Type: Spontaneous
  Country: US (occurrence: US)
  Receive Date: 20220201
  Receipt Date: 20231218
  Transmission Date: 20240109
  Serious: No
  Sender: FDA-Public Use
  Company Number: US-PFIZER INC-202101539719

PATIENT
  Age: 64 Year
  Sex: Female

DRUGS (1)
  1. IBRANCE [Suspect]
     Active Substance: PALBOCICLIB
     Indication: Breast cancer metastatic
     Dosage: TAKE 1 TABLET (75 MG TOTAL) DAILY. TAKE 1 TABLET DAYS 1 THROUGH 21 OF 28 DAY CYCLE.
     Route: 048
     Dates: start: 20210122

REACTIONS (1)
  - Full blood count decreased [Unknown]
